FAERS Safety Report 6244710-2 (Version None)
Quarter: 2009Q2

REPORT INFORMATION
  Report Type: 
  Country: None (occurrence: None)
  Receive Date: 20090619
  Receipt Date: 20090422
  Transmission Date: 20091009
  Serious: No
  Sender: FDA-Public Use
  Company Number: ALL1-2009-01074

PATIENT
  Age: 47 Year
  Sex: Female
  Weight: 65.8 kg

DRUGS (2)
  1. VYVANSE [Suspect]
     Indication: INSULIN RESISTANCE
     Dosage: 70 MG, 1X/DAY:QD, ORAL
     Route: 048
     Dates: start: 20090414
  2. VYVANSE [Suspect]
     Indication: NERVOUS SYSTEM DISORDER
     Dosage: 70 MG, 1X/DAY:QD, ORAL
     Route: 048
     Dates: start: 20090414

REACTIONS (3)
  - OFF LABEL USE [None]
  - URINE COLOUR ABNORMAL [None]
  - VISION BLURRED [None]
